FAERS Safety Report 11545515 (Version 1)
Quarter: 2015Q3

REPORT INFORMATION
  Report Type: Spontaneous
  Country: US (occurrence: US)
  Receive Date: 20150924
  Receipt Date: 20150924
  Transmission Date: 20151125
  Serious: Yes (Other)
  Sender: FDA-Public Use
  Company Number: PHHY2015US114104

PATIENT
  Age: 28 Year

DRUGS (1)
  1. NAPROXEN. [Suspect]
     Active Substance: NAPROXEN
     Indication: MYALGIA
     Route: 065

REACTIONS (2)
  - Hepatic fibrosis [Unknown]
  - Cholestatic liver injury [Unknown]
